FAERS Safety Report 8434124-9 (Version None)
Quarter: 2012Q2

REPORT INFORMATION
  Report Type: 
  Country: None (occurrence: None)
  Receive Date: 20120613
  Receipt Date: 20120604
  Transmission Date: 20120825
  Serious: Yes (Hospitalization, Other)
  Sender: FDA-Public Use
  Company Number: US-ACTELION-A-US2012-66869

PATIENT

DRUGS (3)
  1. SILDENAFIL [Concomitant]
  2. CALCIUM CHANNEL BLOCKERS [Concomitant]
  3. TRACLEER [Suspect]
     Indication: PULMONARY ARTERIAL HYPERTENSION
     Dosage: UNK
     Route: 048
     Dates: start: 20060703

REACTIONS (4)
  - LOSS OF CONSCIOUSNESS [None]
  - ROCKY MOUNTAIN SPOTTED FEVER [None]
  - ARTHROPOD BITE [None]
  - PARAPLEGIA [None]
